FAERS Safety Report 7878452-4 (Version None)
Quarter: 2011Q4

REPORT INFORMATION
  Report Type: 
  Country: None (occurrence: None)
  Receive Date: 20111028
  Receipt Date: 20111013
  Transmission Date: 20120403
  Serious: Yes (Disabling, Other)
  Sender: FDA-Public Use
  Company Number: 2010MA002615

PATIENT
  Sex: Female
  Weight: 127.0072 kg

DRUGS (31)
  1. PAROXETINE HCL [Concomitant]
  2. PENTOXIFYLLINE [Concomitant]
  3. FLONASE [Concomitant]
  4. ZANTAC [Concomitant]
  5. HYDROCODONE BITARTRATE [Concomitant]
  6. CLONAZEPAM [Concomitant]
  7. FUROSEMIDE [Concomitant]
  8. GABAPENTIN [Concomitant]
  9. TRAZODONE HYDROCHLORIDE [Concomitant]
  10. THYROID TAB [Concomitant]
  11. COGENTIN [Concomitant]
  12. METFORMIN HCL [Concomitant]
  13. PRILOSEC [Concomitant]
  14. BACTRIM DS [Concomitant]
  15. DECADRON [Concomitant]
  16. ACETAMINOPHEN AND HYDROCODONE BITARTRATE [Concomitant]
  17. SIMAVSTATIN [Concomitant]
  18. PEPCID [Concomitant]
  19. CYCLOBENZAPRINE [Concomitant]
  20. LEVOTHYROXINE SODIUM [Concomitant]
  21. CLARITIN [Concomitant]
  22. ZITHROMAX [Concomitant]
  23. METOCLOPRAMIDE [Suspect]
     Indication: DYSPEPSIA
     Dosage: 10 MG;QID;PO
     Route: 048
     Dates: start: 19990101, end: 20081201
  24. METOCLOPRAMIDE [Suspect]
     Indication: GASTROOESOPHAGEAL REFLUX DISEASE
     Dosage: 10 MG;QID;PO
     Route: 048
     Dates: start: 19990101, end: 20081201
  25. LISINOPRIL [Concomitant]
  26. WARFARIN SODIUM [Concomitant]
  27. OMNARIS [Concomitant]
  28. TERAZOL 1 [Concomitant]
  29. HYDROXYUREA [Concomitant]
  30. FEXOFENADINE [Concomitant]
  31. OMNICEF [Concomitant]

REACTIONS (42)
  - TRANSIENT ISCHAEMIC ATTACK [None]
  - PARKINSONISM [None]
  - MUSCULOSKELETAL PAIN [None]
  - DRY MOUTH [None]
  - EDENTULOUS [None]
  - INCONTINENCE [None]
  - FALL [None]
  - WHEELCHAIR USER [None]
  - SWOLLEN TONGUE [None]
  - UNEVALUABLE EVENT [None]
  - CLUMSINESS [None]
  - COMPRESSION FRACTURE [None]
  - BALANCE DISORDER [None]
  - ARTHRITIS [None]
  - SINUS HEADACHE [None]
  - MENTAL STATUS CHANGES [None]
  - CONFUSIONAL STATE [None]
  - ERYTHEMA [None]
  - TREMOR [None]
  - ECONOMIC PROBLEM [None]
  - DYSKINESIA [None]
  - DYSPEPSIA [None]
  - HYPOTHYROIDISM [None]
  - ANXIETY [None]
  - DYSPHAGIA [None]
  - NAUSEA [None]
  - EXTRAPYRAMIDAL DISORDER [None]
  - INCORRECT DRUG ADMINISTRATION DURATION [None]
  - STRESS [None]
  - GASTROOESOPHAGEAL REFLUX DISEASE [None]
  - VISION BLURRED [None]
  - PARAESTHESIA [None]
  - WALKING AID USER [None]
  - DIARRHOEA [None]
  - MULTIPLE ALLERGIES [None]
  - URINARY TRACT INFECTION [None]
  - RHINORRHOEA [None]
  - TARDIVE DYSKINESIA [None]
  - VOMITING [None]
  - COGNITIVE DISORDER [None]
  - EMOTIONAL DISORDER [None]
  - ASTHENIA [None]
